FAERS Safety Report 7438150-8 (Version None)
Quarter: 2011Q2

REPORT INFORMATION
  Report Type: 
  Country: None (occurrence: None)
  Receive Date: 20110421
  Receipt Date: 20110421
  Transmission Date: 20111010
  Serious: No
  Sender: FDA-Public Use
  Company Number: None

PATIENT
  Age: 46 Year
  Sex: Female
  Weight: 49.8957 kg

DRUGS (1)
  1. RECLAST [Suspect]
     Indication: OSTEOPOROSIS
     Dosage: 5MG X ONE IV
     Route: 042
     Dates: start: 20110308

REACTIONS (6)
  - VOMITING [None]
  - MYALGIA [None]
  - NAUSEA [None]
  - DIARRHOEA [None]
  - PYREXIA [None]
  - INFLUENZA LIKE ILLNESS [None]
